FAERS Safety Report 6765919-5 (Version None)
Quarter: 2010Q2

REPORT INFORMATION
  Report Type: 
  Country: None (occurrence: None)
  Receive Date: 20100611
  Receipt Date: 20100607
  Transmission Date: 20101027
  Serious: Yes (Other)
  Sender: FDA-Public Use
  Company Number: CHPA2010DE08193

PATIENT
  Sex: Male
  Weight: 70 kg

DRUGS (5)
  1. SCOPOLAMINE [Suspect]
     Indication: MOTION SICKNESS
     Dosage: UNK, UNK
     Route: 062
     Dates: start: 20100401, end: 20100401
  2. SCOPOLAMINE [Suspect]
     Dosage: UNK, UNK
     Route: 062
     Dates: end: 20100510
  3. ^ANTIHYPERTONICS^ [Concomitant]
  4. ENALAPRIL [Concomitant]
  5. LANTUS [Concomitant]

REACTIONS (3)
  - BLOOD GLUCOSE DECREASED [None]
  - BLOOD GLUCOSE FLUCTUATION [None]
  - DECREASED INSULIN REQUIREMENT [None]
